FAERS Safety Report 5420709-0 (Version None)
Quarter: 2007Q3

REPORT INFORMATION
  Report Type: 
  Country: None (occurrence: None)
  Receive Date: 20070816
  Receipt Date: 20070802
  Transmission Date: 20080115
  Serious: Yes (Hospitalization)
  Sender: FDA-Public Use
  Company Number: S07-AUT-03434-01

PATIENT
  Age: 26 Year
  Sex: Female

DRUGS (22)
  1. CIPRALEX (ESCITALOPRAM) [Suspect]
     Indication: BIPOLAR DISORDER
     Dosage: 10 MG QD PO
     Route: 048
     Dates: start: 20061102, end: 20061113
  2. CIPRALEX (ESCITALOPRAM) [Suspect]
     Indication: MANIA
     Dosage: 10 MG QD PO
     Route: 048
     Dates: start: 20061102, end: 20061113
  3. CIPRALEX (ESCITALOPRAM) [Suspect]
     Indication: BIPOLAR DISORDER
     Dosage: 15 MG QD PO
     Route: 048
     Dates: start: 20061114, end: 20061124
  4. CIPRALEX (ESCITALOPRAM) [Suspect]
     Indication: MANIA
     Dosage: 15 MG QD PO
     Route: 048
     Dates: start: 20061114, end: 20061124
  5. LORAZEPAM [Suspect]
     Indication: BIPOLAR DISORDER
     Dosage: 1.25 MG QD PO
     Route: 048
     Dates: start: 20061109, end: 20061115
  6. LORAZEPAM [Suspect]
     Indication: MANIA
     Dosage: 1.25 MG QD PO
     Route: 048
     Dates: start: 20061109, end: 20061115
  7. LORAZEPAM [Suspect]
     Indication: BIPOLAR DISORDER
     Dosage: 2.5 MG QD PO
     Route: 048
     Dates: start: 20061102, end: 20061108
  8. LORAZEPAM [Suspect]
     Indication: MANIA
     Dosage: 2.5 MG QD PO
     Route: 048
     Dates: start: 20061102, end: 20061108
  9. SEROQUEL [Suspect]
     Dosage: 500 MG QD PO
     Route: 048
     Dates: start: 20061108, end: 20061114
  10. SEROQUEL [Suspect]
     Dosage: 600 MG QD PO
     Route: 048
     Dates: start: 20061115, end: 20061115
  11. SEROQUEL [Suspect]
     Dosage: 500 MG QD PO
     Route: 048
     Dates: start: 20061116, end: 20061116
  12. SEROQUEL [Suspect]
     Dosage: 400 MG QD PO
     Route: 048
     Dates: start: 20061117, end: 20061118
  13. SEROQUEL [Suspect]
     Dosage: 350 MG QD PO
     Route: 048
     Dates: start: 20061119, end: 20061119
  14. SEROQUEL [Suspect]
     Dosage: 300 MG QD PO
     Route: 048
     Dates: start: 20061120, end: 20061120
  15. SEROQUEL [Suspect]
     Dosage: 200 MG QD PO
     Route: 048
     Dates: start: 20061121, end: 20061121
  16. SEROQUEL [Suspect]
     Dosage: 100 MG QD PO
     Route: 048
     Dates: start: 20061127
  17. SEROQUEL [Suspect]
     Dosage: 75 MG QD PO
     Route: 048
     Dates: start: 20061102, end: 20061102
  18. SEROQUEL [Suspect]
     Dosage: 100 MG QD PO
     Route: 048
     Dates: start: 20061103, end: 20061103
  19. SEROQUEL [Suspect]
     Dosage: 150 MG QD PO
     Route: 048
     Dates: start: 20061104, end: 20061104
  20. SEROQUEL [Suspect]
     Dosage: 200 MG QD PO
     Route: 048
     Dates: start: 20061105, end: 20061105
  21. SEROQUEL [Suspect]
     Dosage: 300 MG QD PO
     Route: 048
     Dates: start: 20061106, end: 20061106
  22. SEROQUEL [Suspect]
     Dosage: 400 MG QD PO
     Route: 048
     Dates: start: 20061107, end: 20061107

REACTIONS (2)
  - HYPOTONIA [None]
  - VERTIGO [None]
